FAERS Safety Report 9243312 (Version 9)
Quarter: 2014Q1

REPORT INFORMATION
  Report Type: Spontaneous
  Country: US (occurrence: US)
  Receive Date: 20130419
  Receipt Date: 20140102
  Transmission Date: 20141002
  Serious: Yes (Hospitalization, Other)
  Sender: FDA-Public Use
  Company Number: US-UCBSA-083669

PATIENT
  Age: 51 Year
  Sex: Female

DRUGS (23)
  1. CIMZIA [Suspect]
     Indication: CROHN^S DISEASE
     Route: 058
     Dates: start: 20110911
  2. CIMZIA [Suspect]
     Indication: RHEUMATOID ARTHRITIS
     Route: 058
     Dates: start: 20110911
  3. CIMZIA [Suspect]
     Indication: CROHN^S DISEASE
     Dosage: EXPIRY DATE:  ??-NOV-2015, ??-FEB-2016
     Route: 058
     Dates: start: 20110930
  4. CIMZIA [Suspect]
     Indication: RHEUMATOID ARTHRITIS
     Dosage: EXPIRY DATE:  ??-NOV-2015, ??-FEB-2016
     Route: 058
     Dates: start: 20110930
  5. HYDROCORTISONE [Concomitant]
     Dosage: 2.5 %
     Route: 061
  6. MAGNESIUM OXIDE [Concomitant]
     Route: 048
  7. PHENERGAN [Concomitant]
     Dosage: 1/2 25 MG TAB Q6H PRN
     Route: 048
  8. DICYCLOMINE HCI [Concomitant]
     Indication: ABDOMINAL PAIN
     Dosage: ONE CAPSULE Q 6 HOURS; PRN; DOSE : 10 MG
  9. PENTASA [Concomitant]
     Route: 048
  10. LASIX [Concomitant]
     Route: 048
  11. SEROQUEL [Concomitant]
     Dosage: AT BED TIME
     Route: 048
  12. FOLIC ACID [Concomitant]
     Route: 048
  13. EVISTA [Concomitant]
     Route: 048
  14. EFFEXOR-XR [Concomitant]
     Dosage: WITH FOOD
     Route: 048
  15. VITAMIN D [Concomitant]
     Dosage: DOSE: 400 UNITS; EVERY DAY ONCE
     Route: 048
  16. ATIVAN [Concomitant]
     Dosage: AS NEEDED
     Route: 048
  17. CALCITONIN-SALMON [Concomitant]
     Dosage: 200 UNITS/DOSE; ALTERNATING NOSTRILS EVERY DAY
     Route: 045
  18. LYRICA [Concomitant]
     Route: 048
  19. DILAUDID [Concomitant]
     Dosage: DOSE: 8 MG; QID; PRN
  20. REMERON [Concomitant]
     Dosage: BEFORE BEDTIME
     Route: 048
  21. VITAMIN-B12 [Concomitant]
     Dosage: DOSE: 1,000 MCG
  22. SENOKOT [Concomitant]
     Indication: CONSTIPATION
     Dosage: DOSE: 8.6 MG; 2 TAB EVERY DAY AS NEEDED
     Route: 048
  23. FORTEO [Concomitant]
     Dosage: 20 MCG/DOSE (600 MCG/2.4 MI) INJECT 0.08; INTO THE THIGH OR ABDOMINAL WALL
     Route: 058

REACTIONS (4)
  - Malaise [Not Recovered/Not Resolved]
  - Substance abuse [Unknown]
  - Crohn^s disease [Not Recovered/Not Resolved]
  - Pyrexia [Not Recovered/Not Resolved]
